FAERS Safety Report 21257198 (Version 1)
Quarter: 2022Q3

REPORT INFORMATION
  Report Type: Spontaneous
  Country: CN (occurrence: CN)
  Receive Date: 20220826
  Receipt Date: 20220826
  Transmission Date: 20221027
  Serious: Yes (Life-Threatening, Hospitalization, Other)
  Sender: FDA-Public Use
  Company Number: CN-AUROBINDO-AUR-APL-2022-033424

PATIENT
  Age: 26 Year
  Sex: Female
  Weight: 83 kg

DRUGS (4)
  1. EVOMELA [Suspect]
     Active Substance: MELPHALAN HYDROCHLORIDE
     Indication: Lymphoma
     Dosage: 200 MILLIGRAM, ONCE A DAY
     Route: 041
     Dates: start: 20220528, end: 20220528
  2. BENDAMUSTINE HYDROCHLORIDE [Suspect]
     Active Substance: BENDAMUSTINE HYDROCHLORIDE
     Indication: Lymphoma
     Dosage: 250 MILLIGRAM, ONCE A DAY
     Route: 041
     Dates: start: 20220523, end: 20220524
  3. ETOPOSIDE [Suspect]
     Active Substance: ETOPOSIDE
     Indication: Lymphoma
     Dosage: 400 MILLIGRAM, ONCE A DAY
     Route: 041
     Dates: start: 20220525, end: 20220527
  4. CYTARABINE [Suspect]
     Active Substance: CYTARABINE
     Indication: Lymphoma
     Dosage: 500 MILLIGRAM, ONCE A DAY
     Route: 041
     Dates: start: 20220525, end: 20220528

REACTIONS (2)
  - Myelosuppression [Recovering/Resolving]
  - Off label use [Unknown]

NARRATIVE: CASE EVENT DATE: 20220528
